FAERS Safety Report 8416021-8 (Version None)
Quarter: 2012Q2

REPORT INFORMATION
  Report Type: 
  Country: None (occurrence: None)
  Receive Date: 20120606
  Receipt Date: 20120530
  Transmission Date: 20120825
  Serious: Yes (Other)
  Sender: FDA-Public Use
  Company Number: JP-ROCHE-1037372

PATIENT
  Sex: Female
  Weight: 58.067 kg

DRUGS (6)
  1. ZYRTEC [Concomitant]
  2. HOKUNALIN [Concomitant]
  3. OMALIZUMAB [Suspect]
     Indication: ASTHMA
     Route: 058
     Dates: start: 20110707, end: 20110707
  4. PULMICORT [Concomitant]
  5. MONTELUKAST SODIUM [Concomitant]
  6. SYMBICORT [Concomitant]

REACTIONS (3)
  - HYPERSENSITIVITY [None]
  - RASH [None]
  - DYSPNOEA [None]
